FAERS Safety Report 4316621-0 (Version None)
Quarter: 2004Q1

REPORT INFORMATION
  Report Type: 
  Country: None (occurrence: None)
  Receive Date: 20040311
  Receipt Date: 20040214
  Transmission Date: 20041129
  Serious: Yes (Hospitalization)
  Sender: FDA-Public Use
  Company Number: A03200400318

PATIENT
  Sex: Female
  Weight: 56.6996 kg

DRUGS (2)
  1. PLAVIX [Suspect]
     Dosage: 75 MG QD-ORAL
     Route: 048
  2. MULTIPLE MEDICATIONS [Concomitant]

REACTIONS (5)
  - BLOOD CALCIUM INCREASED [None]
  - CONFUSIONAL STATE [None]
  - DELIRIUM [None]
  - INFECTION [None]
  - WEIGHT INCREASED [None]
